FAERS Safety Report 5839238-5 (Version None)
Quarter: 2008Q3

REPORT INFORMATION
  Report Type: 
  Country: None (occurrence: None)
  Receive Date: 20080806
  Receipt Date: 20080721
  Transmission Date: 20090109
  Serious: Yes (Other)
  Sender: FDA-Public Use
  Company Number: 8035024

PATIENT
  Age: 12 Year
  Sex: Male

DRUGS (4)
  1. PREDNISOLONE [Suspect]
     Indication: SEASONAL ALLERGY
     Dosage: PO
     Route: 048
     Dates: start: 20080625
  2. PREDNISOLONE [Suspect]
     Indication: WHEEZING
     Dosage: PO
     Route: 048
     Dates: start: 20080625
  3. CETIRIZINE HCL [Concomitant]
  4. LORATADINE [Concomitant]

REACTIONS (2)
  - DIPLEGIA [None]
  - MUSCULOSKELETAL STIFFNESS [None]
